FAERS Safety Report 26054513 (Version 1)
Quarter: 2025Q4

REPORT INFORMATION
  Report Type: Spontaneous
  Country: KN (occurrence: KN)
  Receive Date: 20251117
  Receipt Date: 20251117
  Transmission Date: 20260118
  Serious: Yes (Life-Threatening, Hospitalization, Other)
  Sender: ELITE
  Company Number: KN-ELITEPHARMA-2025ELLIT00268

PATIENT
  Age: 58 Year
  Sex: Male

DRUGS (2)
  1. METHOTREXATE [Suspect]
     Active Substance: METHOTREXATE
     Indication: Acute lymphocytic leukaemia
     Route: 037
  2. CYTARABINE [Concomitant]
     Active Substance: CYTARABINE
     Route: 037

REACTIONS (4)
  - Leukoencephalopathy [Unknown]
  - Toxicity to various agents [Unknown]
  - Respiratory failure [Unknown]
  - Product use issue [Unknown]
